FAERS Safety Report 7033643-X (Version None)
Quarter: 2010Q4

REPORT INFORMATION
  Report Type: 
  Country: None (occurrence: None)
  Receive Date: 20101005
  Receipt Date: 20100922
  Transmission Date: 20110411
  Serious: Yes (Death, Hospitalization)
  Sender: FDA-Public Use
  Company Number: 2010AL000120

PATIENT
  Age: 64 Year
  Sex: Male
  Weight: 71.5 kg

DRUGS (1)
  1. PRALATREXATE (PRALATREXATE) [Suspect]
     Indication: BLADDER CANCER
     Dosage: 273.75 MG;QOW;IV
     Route: 042
     Dates: start: 20091013, end: 20100810

REACTIONS (15)
  - ABDOMINAL PAIN [None]
  - ALANINE AMINOTRANSFERASE INCREASED [None]
  - ASPARTATE AMINOTRANSFERASE INCREASED [None]
  - BILE DUCT OBSTRUCTION [None]
  - BILIARY DILATATION [None]
  - BLADDER CANCER [None]
  - BLOOD ALKALINE PHOSPHATASE INCREASED [None]
  - BLOOD BILIRUBIN INCREASED [None]
  - GAMMA-GLUTAMYLTRANSFERASE INCREASED [None]
  - ILEUS [None]
  - JAUNDICE [None]
  - MALIGNANT NEOPLASM PROGRESSION [None]
  - NEOPLASM [None]
  - RED BLOOD CELL COUNT DECREASED [None]
  - VOMITING [None]
